FAERS Safety Report 20155343 (Version 2)
Quarter: 2022Q2

REPORT INFORMATION
  Report Type: Spontaneous
  Country: US (occurrence: US)
  Receive Date: 20211207
  Receipt Date: 20220603
  Transmission Date: 20220720
  Serious: Yes (Other)
  Sender: FDA-Public Use
  Company Number: US-GILEAD-2021-0557188

PATIENT
  Age: 55 Year
  Sex: Male
  Weight: 106.12 kg

DRUGS (45)
  1. TRUVADA [Suspect]
     Active Substance: EMTRICITABINE\TENOFOVIR DISOPROXIL FUMARATE
     Indication: HIV infection
     Dosage: UNK
     Route: 048
     Dates: start: 201106, end: 201606
  2. APTIVUS [Concomitant]
     Active Substance: TIPRANAVIR
  3. COMBIVIR [Concomitant]
     Active Substance: LAMIVUDINE\ZIDOVUDINE
  4. DELSTRIGO [Concomitant]
     Active Substance: DORAVIRINE\LAMIVUDINE\TENOFOVIR DISOPROXIL FUMARATE
  5. EPIVIR [Concomitant]
     Active Substance: LAMIVUDINE
  6. INTELENCE [Concomitant]
     Active Substance: ETRAVIRINE
  7. KALETRA [Concomitant]
     Active Substance: LOPINAVIR\RITONAVIR
  8. LEXIVA [Concomitant]
     Active Substance: FOSAMPRENAVIR CALCIUM
  9. NORVIR [Concomitant]
     Active Substance: RITONAVIR
  10. PREZCOBIX [Concomitant]
     Active Substance: COBICISTAT\DARUNAVIR ETHANOLATE
  11. PREZISTA [Concomitant]
     Active Substance: DARUNAVIR ETHANOLATE
  12. SUSTIVA [Concomitant]
     Active Substance: EFAVIRENZ
  13. TIVICAY [Concomitant]
     Active Substance: DOLUTEGRAVIR SODIUM
  14. ALBUTEROL [Concomitant]
     Active Substance: ALBUTEROL
  15. ALLEGRA [LEVOCETIRIZINE DIHYDROCHLORIDE] [Concomitant]
  16. AMITRIPTYLINE [Concomitant]
     Active Substance: AMITRIPTYLINE
  17. ABILIFY [Concomitant]
     Active Substance: ARIPIPRAZOLE
  18. WELLBUTRIN [Concomitant]
     Active Substance: BUPROPION HYDROCHLORIDE
  19. WELLBUTRIN XL [Concomitant]
     Active Substance: BUPROPION HYDROCHLORIDE
  20. ACYCLOVIR [Concomitant]
     Active Substance: ACYCLOVIR
  21. CYMBALTA [Concomitant]
     Active Substance: DULOXETINE HYDROCHLORIDE
  22. DEPAKOTE [Concomitant]
     Active Substance: DIVALPROEX SODIUM
  23. DOCONEXENT\ICOSAPENT [Concomitant]
     Active Substance: DOCONEXENT\ICOSAPENT
  24. DICLOFENAC [Concomitant]
     Active Substance: DICLOFENAC
  25. DOXAZOSIN [Concomitant]
     Active Substance: DOXAZOSIN MESYLATE
  26. ERGOCALCIFEROL [Concomitant]
     Active Substance: ERGOCALCIFEROL
  27. FINASTERIDE [Concomitant]
     Active Substance: FINASTERIDE
  28. FLUTICASONE [Concomitant]
     Active Substance: FLUTICASONE
  29. FOLATE SODIUM [Concomitant]
     Active Substance: FOLATE SODIUM
  30. VITAMIN B6 [Concomitant]
     Active Substance: PYRIDOXINE HYDROCHLORIDE
  31. GABAPENTIN [Concomitant]
     Active Substance: GABAPENTIN
  32. HYDROCODONE [Concomitant]
     Active Substance: HYDROCODONE
  33. ACETAMINOPHEN [Concomitant]
     Active Substance: ACETAMINOPHEN
  34. HYDROCORTISONE [Concomitant]
     Active Substance: HYDROCORTISONE
  35. HYDROXYZINE [Concomitant]
     Active Substance: HYDROXYZINE HYDROCHLORIDE
  36. LYRICA [Concomitant]
     Active Substance: PREGABALIN
  37. MONTELUKAST [Concomitant]
     Active Substance: MONTELUKAST SODIUM
  38. PANTOPRAZOLE [Concomitant]
     Active Substance: PANTOPRAZOLE
  39. PRAVASTATIN [Concomitant]
     Active Substance: PRAVASTATIN
  40. PREGABALIN [Concomitant]
     Active Substance: PREGABALIN
  41. SEROQUEL [Concomitant]
     Active Substance: QUETIAPINE FUMARATE
  42. TEMAZEPAM [Concomitant]
     Active Substance: TEMAZEPAM
  43. TESTOSTERONE [Concomitant]
     Active Substance: TESTOSTERONE
  44. TRAZODONE [Concomitant]
     Active Substance: TRAZODONE HYDROCHLORIDE
  45. ZOLPIDEM [Concomitant]
     Active Substance: ZOLPIDEM TARTRATE

REACTIONS (8)
  - Chronic kidney disease [Not Recovered/Not Resolved]
  - Chronic kidney disease [Not Recovered/Not Resolved]
  - Renal impairment [Unknown]
  - Nocturia [Not Recovered/Not Resolved]
  - Anxiety [Not Recovered/Not Resolved]
  - Emotional distress [Not Recovered/Not Resolved]
  - Pain [Not Recovered/Not Resolved]
  - Anhedonia [Not Recovered/Not Resolved]

NARRATIVE: CASE EVENT DATE: 20150901
